FAERS Safety Report 6115079-9 (Version None)
Quarter: 2009Q1

REPORT INFORMATION
  Report Type: 
  Country: None (occurrence: None)
  Receive Date: 20090313
  Receipt Date: 20090310
  Transmission Date: 20090719
  Serious: Yes (Other)
  Sender: FDA-Public Use
  Company Number: B0563983A

PATIENT
  Age: 19 Year
  Sex: Male
  Weight: 45 kg

DRUGS (1)
  1. RELENZA [Suspect]
     Indication: INFLUENZA
     Dosage: 20MG TWICE PER DAY
     Route: 055
     Dates: start: 20090224, end: 20090225

REACTIONS (1)
  - SYNCOPE [None]
